FAERS Safety Report 7939320-2 (Version None)
Quarter: 2011Q4

REPORT INFORMATION
  Report Type: 
  Country: None (occurrence: None)
  Receive Date: 20111125
  Receipt Date: 20111114
  Transmission Date: 20120403
  Serious: Yes (Other)
  Sender: FDA-Public Use
  Company Number: TW-RANBAXY-2011RR-50482

PATIENT
  Age: 49 Year
  Sex: Female

DRUGS (6)
  1. EFAVIRENZ [Suspect]
     Indication: HIV INFECTION
     Dosage: 600 MG, QD
     Route: 065
  2. ZIDOVUDINE [Suspect]
     Indication: HIV INFECTION
     Dosage: 300 MG, BID
     Route: 065
     Dates: start: 20090201
  3. LAMIVUDINE(PEPFAR) [Suspect]
     Indication: HIV INFECTION
     Dosage: 150 MG, BID
     Route: 065
     Dates: start: 20090201
  4. ATAZANAVIR [Suspect]
     Indication: HIV INFECTION
     Dosage: 400 MG/DAY
     Route: 065
     Dates: start: 20090201
  5. PYRIDOSTIGMINE BROMIDE [Concomitant]
     Indication: MYASTHENIA GRAVIS
     Dosage: UNK
     Route: 065
     Dates: start: 20090101
  6. STAVUDINE [Suspect]
     Indication: HIV INFECTION
     Dosage: 30 MG, BID
     Route: 065

REACTIONS (2)
  - MYASTHENIA GRAVIS [None]
  - IMMUNE RECONSTITUTION SYNDROME [None]
